FAERS Safety Report 23846862 (Version 1)
Quarter: 2024Q2

REPORT INFORMATION
  Report Type: Spontaneous
  Country: US (occurrence: US)
  Receive Date: 20240513
  Receipt Date: 20240513
  Transmission Date: 20240716
  Serious: No
  Sender: FDA-Public Use
  Company Number: US-E2BLSMVVAL-SPO/USA/24/0006784

PATIENT
  Age: 25 Year
  Sex: Female

DRUGS (1)
  1. ACCUTANE [Suspect]
     Active Substance: ISOTRETINOIN
     Indication: Product used for unknown indication
     Dates: start: 20240328

REACTIONS (10)
  - Lip dry [Unknown]
  - Papule [Unknown]
  - Vomiting [Unknown]
  - Product dose omission issue [Unknown]
  - Pruritus [Unknown]
  - Skin burning sensation [Unknown]
  - Scar [Unknown]
  - Eye irritation [Unknown]
  - Crying [Unknown]
  - Pain [Unknown]

NARRATIVE: CASE EVENT DATE: 20240427
